FAERS Safety Report 4527966-3 (Version None)
Quarter: 2004Q4

REPORT INFORMATION
  Report Type: 
  Country: None (occurrence: None)
  Receive Date: 20041123
  Receipt Date: 20040205
  Transmission Date: 20050328
  Serious: Yes (Hospitalization, Other)
  Sender: FDA-Public Use
  Company Number: 2003125360

PATIENT
  Age: 73 Year
  Sex: Female
  Weight: 77.1115 kg

DRUGS (4)
  1. LIPITOR [Suspect]
     Indication: BLOOD CHOLESTEROL
     Dosage: 20 MG (DAILY), ORAL
     Route: 048
     Dates: end: 20031201
  2. PENTOXIFYLLINE [Concomitant]
  3. CELECOXIB (CELECOXIB) [Concomitant]
  4. RABEPRAZOLE SODIUM [Concomitant]

REACTIONS (4)
  - BLOOD PRESSURE INCREASED [None]
  - BRONCHITIS ACUTE [None]
  - HEADACHE [None]
  - PALPITATIONS [None]
